FAERS Safety Report 5249545-5 (Version None)
Quarter: 2007Q1

REPORT INFORMATION
  Report Type: 
  Country: None (occurrence: None)
  Receive Date: 20070228
  Receipt Date: 20060206
  Transmission Date: 20070707
  Serious: No
  Sender: FDA-Public Use
  Company Number: S06-USA-00217-01

PATIENT
  Sex: Female

DRUGS (3)
  1. IMITREX [Suspect]
  2. LEXAPRO [Suspect]
     Indication: ANXIETY
     Dosage: 40MG PER DAY
     Route: 048
     Dates: start: 20030101
  3. CELEXA [Concomitant]

REACTIONS (6)
  - CHEST PAIN [None]
  - DRUG INTERACTION [None]
  - MUSCULAR WEAKNESS [None]
  - NECK PAIN [None]
  - SLUGGISHNESS [None]
  - SOMNOLENCE [None]
